FAERS Safety Report 5683492-X (Version None)
Quarter: 2008Q1

REPORT INFORMATION
  Report Type: 
  Country: None (occurrence: None)
  Receive Date: 20080326
  Receipt Date: 20080314
  Transmission Date: 20080703
  Serious: Yes (Other)
  Sender: FDA-Public Use
  Company Number: 060006J08USA

PATIENT
  Age: 27 Year
  Sex: Female

DRUGS (2)
  1. SEROPHENE [Suspect]
     Indication: ANOVULATORY CYCLE
     Dosage: 3 CYCLE
  2. GLUCOPHAGE [Suspect]

REACTIONS (3)
  - ABORTION SPONTANEOUS [None]
  - DIARRHOEA [None]
  - DRUG EXPOSURE DURING PREGNANCY [None]
